FAERS Safety Report 9001600 (Version 2)
Quarter: 2013Q1

REPORT INFORMATION
  Report Type: Spontaneous
  Country: GB (occurrence: PL)
  Receive Date: 20130107
  Receipt Date: 20130108
  Transmission Date: 20140127
  Serious: Yes (Life-Threatening, Hospitalization)
  Sender: FDA-Public Use
  Company Number: GB-GLAXOSMITHKLINE-B0855743A

PATIENT
  Sex: Female

DRUGS (2)
  1. NIQUITIN [Suspect]
     Indication: EX-TOBACCO USER
  2. NIQUITIN CQ 4MG LOZENGE [Suspect]
     Indication: PRODUCT USED FOR UNKNOWN INDICATION
     Route: 002

REACTIONS (7)
  - Haemorrhage [Unknown]
  - Cerebrovascular accident [Unknown]
  - Stress [Unknown]
  - Angiopathy [Unknown]
  - Gastric disorder [Unknown]
  - Injury [Unknown]
  - Malaise [Not Recovered/Not Resolved]
